FAERS Safety Report 5303138-X (Version None)
Quarter: 2007Q2

REPORT INFORMATION
  Report Type: 
  Country: None (occurrence: None)
  Receive Date: 20070420
  Receipt Date: 20070409
  Transmission Date: 20071010
  Serious: Yes (Other)
  Sender: FDA-Public Use
  Company Number: PHEH2007US04717

PATIENT
  Age: 70 Year
  Sex: Female

DRUGS (2)
  1. LOTREL [Suspect]
     Indication: HYPERTENSION
     Dosage: UNK, QD
     Route: 048
     Dates: end: 20060401
  2. LOTREL [Suspect]
     Dosage: UNK, QD
     Route: 048
     Dates: end: 20060401

REACTIONS (2)
  - HERPES ZOSTER [None]
  - RENAL FAILURE [None]
